FAERS Safety Report 18212187 (Version 1)
Quarter: 2020Q3

REPORT INFORMATION
  Report Type: Report from Study
  Country: UA (occurrence: UA)
  Receive Date: 20200831
  Receipt Date: 20200831
  Transmission Date: 20201103
  Serious: Yes (Death, Hospitalization)
  Sender: FDA-Public Use
  Company Number: UA-TEVA-2020-UA-1821331

PATIENT
  Age: 57 Year
  Sex: Female

DRUGS (13)
  1. CISPLATIN. [Suspect]
     Active Substance: CISPLATIN
     Indication: CHEMOTHERAPY
     Dosage: THREE COURSES
     Route: 065
     Dates: start: 2011, end: 2011
  2. CYCLOPHOSPHAMIDE. [Suspect]
     Active Substance: CYCLOPHOSPHAMIDE
     Indication: OVARIAN EPITHELIAL CANCER
     Dosage: SIX CYCLES
     Route: 065
     Dates: start: 2010, end: 2010
  3. CYCLOPHOSPHAMIDE. [Suspect]
     Active Substance: CYCLOPHOSPHAMIDE
     Indication: CHEMOTHERAPY
     Dosage: THREE COURSES
     Route: 065
     Dates: start: 2011, end: 2011
  4. DOXOLEX [DOXORUBICIN] [Suspect]
     Active Substance: DOXORUBICIN
     Indication: DISEASE PROGRESSION
  5. CYCLOPHOSPHAMIDE. [Suspect]
     Active Substance: CYCLOPHOSPHAMIDE
     Indication: DISEASE PROGRESSION
     Dosage: ADDITIONAL THREE CYCLES
     Route: 065
     Dates: start: 201201, end: 201204
  6. PACLITAXEL. [Suspect]
     Active Substance: PACLITAXEL
     Indication: CHEMOTHERAPY
  7. CISPLATIN. [Suspect]
     Active Substance: CISPLATIN
     Indication: DISEASE PROGRESSION
     Dosage: ADDITIONAL THREE CYCLES
     Route: 065
     Dates: start: 201201, end: 201204
  8. DOXOLEX [DOXORUBICIN] [Suspect]
     Active Substance: DOXORUBICIN
     Indication: OVARIAN EPITHELIAL CANCER
     Dosage: THREE COURSES; TOTAL DOSE OF 300 MG
     Route: 065
     Dates: start: 2011, end: 2011
  9. CARBOPLATIN. [Suspect]
     Active Substance: CARBOPLATIN
     Indication: INTESTINAL ADENOCARCINOMA
     Route: 065
     Dates: start: 2012, end: 201210
  10. DOXOLEX [DOXORUBICIN] [Suspect]
     Active Substance: DOXORUBICIN
     Indication: CHEMOTHERAPY
     Dosage: ADDITIONAL THREE CYCLES
     Route: 065
     Dates: start: 201201, end: 201204
  11. CARBOPLATIN. [Suspect]
     Active Substance: CARBOPLATIN
     Indication: CHEMOTHERAPY
  12. PACLITAXEL. [Suspect]
     Active Substance: PACLITAXEL
     Indication: INTESTINAL ADENOCARCINOMA
     Route: 065
     Dates: start: 2012, end: 201210
  13. CISPLATIN. [Suspect]
     Active Substance: CISPLATIN
     Indication: OVARIAN EPITHELIAL CANCER
     Dosage: SIX CYCLES
     Route: 065
     Dates: start: 2010, end: 2010

REACTIONS (7)
  - Infection [Unknown]
  - Acute monocytic leukaemia [Not Recovered/Not Resolved]
  - Carbuncle [Unknown]
  - Renal failure [Unknown]
  - Multiple organ dysfunction syndrome [Fatal]
  - Leukaemia [Not Recovered/Not Resolved]
  - Hepatitis toxic [Unknown]

NARRATIVE: CASE EVENT DATE: 201703
